FAERS Safety Report 11253909 (Version 1)
Quarter: 2015Q3

REPORT INFORMATION
  Report Type: Spontaneous
  Country: US (occurrence: None)
  Receive Date: 20150708
  Receipt Date: 20150708
  Transmission Date: 20151125
  Serious: No
  Sender: FDA-Public Use
  Company Number: None

PATIENT
  Age: 81 Year
  Sex: Female
  Weight: 56.7 kg

DRUGS (14)
  1. VIT. D3 [Concomitant]
  2. ENALAPRIL MALEATE. [Concomitant]
     Active Substance: ENALAPRIL MALEATE
  3. MULTIVITAMIN [Concomitant]
     Active Substance: VITAMINS
  4. BIOTIN [Concomitant]
     Active Substance: BIOTIN
  5. IODINE SOLUTION [Concomitant]
  6. WARFARIN SODIUM. [Concomitant]
     Active Substance: WARFARIN SODIUM
  7. FISH OIL [Concomitant]
     Active Substance: FISH OIL
  8. LEVOTHYROXINE SODIUM. [Concomitant]
     Active Substance: LEVOTHYROXINE SODIUM
  9. VITAMIN C [Concomitant]
     Active Substance: ASCORBIC ACID
  10. CALCIUM 600+D [Concomitant]
     Active Substance: CALCIUM\VITAMIN D
  11. VIT B-12 [Concomitant]
  12. ILEVRO [Suspect]
     Active Substance: NEPAFENAC
     Indication: CATARACT OPERATION
     Route: 047
     Dates: start: 20140526, end: 20140618
  13. ASPIRIN. [Concomitant]
     Active Substance: ASPIRIN
  14. LANOXIN [Concomitant]
     Active Substance: DIGOXIN

REACTIONS (3)
  - Hearing impaired [None]
  - Balance disorder [None]
  - Visual impairment [None]

NARRATIVE: CASE EVENT DATE: 20140514
